FAERS Safety Report 9890868 (Version 2)
Quarter: 2014Q1

REPORT INFORMATION
  Report Type: Report from Study
  Country: SE (occurrence: SE)
  Receive Date: 20140212
  Receipt Date: 20140218
  Transmission Date: 20141002
  Serious: Yes (Other)
  Sender: FDA-Public Use
  Company Number: SE-UCBSA-112381

PATIENT
  Age: 49 Year
  Sex: Female

DRUGS (1)
  1. CIMZIA [Suspect]
     Indication: SPONDYLITIS
     Dosage: 200 MG
     Dates: start: 20130203, end: 20131230

REACTIONS (4)
  - Bronchopneumonia [Recovered/Resolved]
  - Herpes zoster [Recovered/Resolved]
  - Rash erythematous [Recovered/Resolved]
  - Pyrexia [Recovered/Resolved]
